FAERS Safety Report 4657349-7 (Version None)
Quarter: 2005Q2

REPORT INFORMATION
  Report Type: 
  Country: None (occurrence: None)
  Receive Date: 20050411
  Receipt Date: 20020605
  Transmission Date: 20051028
  Serious: Yes (Death)
  Sender: FDA-Public Use
  Company Number: 5058

PATIENT
  Age: 46 Year
  Sex: Male

DRUGS (1)
  1. VINCRISTINE [Suspect]
     Indication: TESTIS CANCER
     Dosage: 4 MG TOTAL

REACTIONS (1)
  - NEUROTOXICITY [None]
